FAERS Safety Report 23162554 (Version 2)
Quarter: 2023Q4

REPORT INFORMATION
  Report Type: Spontaneous
  Country: JP (occurrence: JP)
  Receive Date: 20231109
  Receipt Date: 20231109
  Transmission Date: 20240110
  Serious: Yes (Hospitalization, Other)
  Sender: FDA-Public Use
  Company Number: JP-Merck Healthcare KGaA-2023486758

PATIENT
  Age: 38 Year
  Sex: Female
  Weight: 72 kg

DRUGS (5)
  1. METGLUCO [Suspect]
     Active Substance: METFORMIN HYDROCHLORIDE
     Indication: Type 2 diabetes mellitus
     Route: 048
  2. GLIMEPIRIDE [Suspect]
     Active Substance: GLIMEPIRIDE
     Indication: Product used for unknown indication
     Route: 048
  3. JARDIANCE [Suspect]
     Active Substance: EMPAGLIFLOZIN
     Indication: Product used for unknown indication
     Route: 048
  4. LINAGLIPTIN [Suspect]
     Active Substance: LINAGLIPTIN
     Indication: Product used for unknown indication
     Route: 048
  5. PITAVASTATIN CALCIUM [Suspect]
     Active Substance: PITAVASTATIN CALCIUM
     Indication: Product used for unknown indication
     Route: 048

REACTIONS (6)
  - Depressed level of consciousness [Unknown]
  - Ketoacidosis [Unknown]
  - Polyuria [Unknown]
  - Dehydration [Unknown]
  - Blood sodium increased [Unknown]
  - Diabetes mellitus inadequate control [Unknown]
